FAERS Safety Report 13340690 (Version 2)
Quarter: 2017Q3

REPORT INFORMATION
  Report Type: Spontaneous
  Country: US (occurrence: US)
  Receive Date: 20170316
  Receipt Date: 20170726
  Transmission Date: 20171127
  Serious: No
  Sender: FDA-Public Use
  Company Number: US-ASTRAZENECA-2017SE25496

PATIENT
  Age: 913 Month
  Sex: Male

DRUGS (2)
  1. SYMBICORT [Suspect]
     Active Substance: BUDESONIDE\FORMOTEROL FUMARATE DIHYDRATE
     Indication: CHRONIC OBSTRUCTIVE PULMONARY DISEASE
     Dosage: 160MCG/4.5MCG, HE MAY NOT USE IT, OR HE USED IT ONLY ONCE ONE DAY, AND TWICE A DAY ANOTHER DAY  U...
     Route: 055
     Dates: start: 201608
  2. SYMBICORT [Suspect]
     Active Substance: BUDESONIDE\FORMOTEROL FUMARATE DIHYDRATE
     Indication: CHRONIC OBSTRUCTIVE PULMONARY DISEASE
     Dosage: 160MCG/4.5MCG, 2 PUFFS TWICE A DAY UNKNOWN
     Route: 055
     Dates: start: 201702

REACTIONS (7)
  - Dyspnoea [Unknown]
  - Lung infection [Not Recovered/Not Resolved]
  - Intentional device misuse [Unknown]
  - Asthenia [Not Recovered/Not Resolved]
  - Device issue [Recovering/Resolving]
  - Cough [Not Recovered/Not Resolved]
  - Off label use of device [Unknown]

NARRATIVE: CASE EVENT DATE: 201702
